FAERS Safety Report 4818899-3 (Version None)
Quarter: 2005Q4

REPORT INFORMATION
  Report Type: 
  Country: None (occurrence: None)
  Receive Date: 20051101
  Receipt Date: 20051024
  Transmission Date: 20060501
  Serious: Yes (Death)
  Sender: FDA-Public Use
  Company Number: 167-20785-05100326

PATIENT

DRUGS (11)
  1. THALIDOMIDE - PHARMION (THALIDOMIDE) (50 MILLIGRAM, CAPSULES) [Suspect]
     Indication: MULTIPLE MYELOMA
     Dosage: INDUCTION: 50 MG ESCALATE BY 50 MG TO 300 MG, BASED ON TOLERANCE, QD, ORAL; MAINTENANCE: 100MG, QD,
     Route: 048
  2. CYCLOPHOSPHAMIDE [Suspect]
     Indication: MULTIPLE MYELOMA
     Dosage: 300 MG/M2, ONCE WEEKLY, ORAL
     Route: 048
  3. DEXAMETHASONE [Suspect]
     Indication: MULTIPLE MYELOMA
     Dosage: 40 MG, QD FOR 4 DAYS, ONCE MONTHLY, ORAL
     Route: 048
  4. BISPHOAPHONATES [Concomitant]
  5. PROTON-PUMP INHIBITORS OR H2-RECEPTOR [Concomitant]
  6. WARFARIN [Concomitant]
  7. GRANISETRON [Concomitant]
  8. G-CSF (GRANULOCYTE COLONY STIMULATING FACTOR) [Concomitant]
  9. EPOGEN [Concomitant]
  10. SULFAMETHOXAZOLE/TRIMETHOPRIM -OR- NEBULIZED PENTAMIDINE [Concomitant]
  11. IMMUNOGLOBULINS [Concomitant]

REACTIONS (1)
  - SUDDEN DEATH [None]
